FAERS Safety Report 7477649-5 (Version None)
Quarter: 2011Q2

REPORT INFORMATION
  Report Type: 
  Country: None (occurrence: None)
  Receive Date: 20110513
  Receipt Date: 20110113
  Transmission Date: 20111010
  Serious: Yes (Hospitalization, Other)
  Sender: FDA-Public Use
  Company Number: US-BAYER-201036410NA

PATIENT
  Age: 33 Year
  Sex: Female
  Weight: 81.179 kg

DRUGS (6)
  1. YASMIN [Suspect]
     Indication: ACNE
  2. YASMIN [Suspect]
     Indication: PREMENSTRUAL SYNDROME
  3. EFFEXOR [Concomitant]
     Indication: ANXIETY
     Dosage: UNK
     Route: 048
     Dates: start: 20041217, end: 20060430
  4. YASMIN [Suspect]
     Indication: CONTRACEPTION
     Dosage: UNK
     Dates: start: 20050722
  5. EFFEXOR [Concomitant]
     Indication: DEPRESSION
  6. DIAMOX [Concomitant]
     Indication: PAPILLOEDEMA
     Dosage: 250 MG, UNK

REACTIONS (7)
  - INTRACRANIAL VENOUS SINUS THROMBOSIS [None]
  - DEPRESSION [None]
  - CEREBRAL VENOUS THROMBOSIS [None]
  - BLINDNESS TRANSIENT [None]
  - DEEP VEIN THROMBOSIS [None]
  - HEADACHE [None]
  - ANXIETY [None]
